FAERS Safety Report 6171510-4 (Version None)
Quarter: 2009Q2

REPORT INFORMATION
  Report Type: 
  Country: None (occurrence: None)
  Receive Date: 20090429
  Receipt Date: 20090416
  Transmission Date: 20091009
  Serious: Yes (Hospitalization)
  Sender: FDA-Public Use
  Company Number: FR-PFIZER INC-2009199541

PATIENT

DRUGS (1)
  1. SUTENT [Suspect]
     Indication: PROSTATE CANCER
     Dosage: 37.5 MG, UNK
     Route: 048
     Dates: start: 20081014, end: 20090112

REACTIONS (1)
  - MALLORY-WEISS SYNDROME [None]
